FAERS Safety Report 9303109 (Version 1)
Quarter: 2013Q2

REPORT INFORMATION
  Report Type: Spontaneous
  Country: US (occurrence: None)
  Receive Date: 20130521
  Receipt Date: 20130521
  Transmission Date: 20140414
  Serious: Yes (Death)
  Sender: FDA-Public Use
  Company Number: None

PATIENT
  Age: 56 Year
  Sex: Male
  Weight: 88.45 kg

DRUGS (1)
  1. EFFIENT [Suspect]
     Dosage: 10 MG PO
     Route: 048
     Dates: start: 20130221, end: 20130515

REACTIONS (6)
  - Acute myocardial infarction [None]
  - Acute pulmonary oedema [None]
  - Respiratory failure [None]
  - Unresponsive to stimuli [None]
  - Headache [None]
  - Haemorrhage intracranial [None]
